FAERS Safety Report 17687952 (Version 2)
Quarter: 2020Q2

REPORT INFORMATION
  Report Type: Report from Study
  Country: CO (occurrence: CO)
  Receive Date: 20200421
  Receipt Date: 20200504
  Transmission Date: 20200714
  Serious: Yes (Hospitalization, Other)
  Sender: FDA-Public Use
  Company Number: NVSC2020CO106111

PATIENT
  Age: 68 Year
  Sex: Male
  Weight: 94 kg

DRUGS (3)
  1. METFORMIN [Suspect]
     Active Substance: METFORMIN HYDROCHLORIDE
     Indication: DIABETES MELLITUS
     Dosage: 1000 MG, Q12H (MANY YEARS AGO)
     Route: 048
  2. COSENTYX [Suspect]
     Active Substance: SECUKINUMAB
     Indication: ANKYLOSING SPONDYLITIS
     Dosage: 150 MG, QMO
     Route: 058
     Dates: start: 20180419
  3. POTASSIUM CITRATE. [Concomitant]
     Active Substance: POTASSIUM CITRATE
     Indication: NEPHROLITHIASIS
     Dosage: 1080 MG, QD (15 YEARS AGO)
     Route: 048

REACTIONS (7)
  - Post procedural discharge [Unknown]
  - Arthritis [Unknown]
  - Post procedural infection [Recovered/Resolved]
  - Incorrect dosage administered [Unknown]
  - Post procedural erythema [Recovered/Resolved]
  - Post procedural inflammation [Unknown]
  - Product dose omission [Unknown]

NARRATIVE: CASE EVENT DATE: 202003
